FAERS Safety Report 8954409 (Version 2)
Quarter: 2012Q4

REPORT INFORMATION
  Report Type: 
  Country: US (occurrence: US)
  Receive Date: 20121210
  Receipt Date: 20121217
  Transmission Date: 20130627
  Serious: No
  Sender: FDA-Public Use
  Company Number: PHEH2012US024017

PATIENT
  Sex: Male

DRUGS (11)
  1. EXELON [Suspect]
  2. EXELON PATCH [Suspect]
     Dosage: 4.6 mg, Once daily
     Route: 062
  3. EXELON PATCH [Suspect]
     Dosage: 9.5 mg, Once daily
     Route: 062
  4. LEVOTHYROXINE [Concomitant]
     Indication: THYROID DISORDER
  5. LORAZEPAM [Concomitant]
  6. METFORMIN [Concomitant]
  7. OMEPRAZOLE [Concomitant]
  8. GABAPENTIN [Concomitant]
     Dosage: 300 mg, UNK
  9. LISINOPRIL [Concomitant]
     Indication: HYPERTENSION
  10. ROSUVASTATIN [Concomitant]
     Indication: BLOOD CHOLESTEROL
  11. NAMENDA [Concomitant]

REACTIONS (1)
  - Drug ineffective [Unknown]
